FAERS Safety Report 13539979 (Version 4)
Quarter: 2017Q3

REPORT INFORMATION
  Report Type: Spontaneous
  Country: KR (occurrence: KR)
  Receive Date: 20170512
  Receipt Date: 20170802
  Transmission Date: 20171127
  Serious: Yes (Hospitalization, Other)
  Sender: FDA-Public Use
  Company Number: KR-009507513-1611KOR001704

PATIENT
  Age: 50 Year
  Sex: Female
  Weight: 60 kg

DRUGS (50)
  1. CISPLATIN. [Concomitant]
     Active Substance: CISPLATIN
     Dosage: 78 MG, ONCE, REPORTED AS CYCLE 3, STRENGTH: 50 MG/100 ML
     Route: 042
     Dates: start: 20170110, end: 20170110
  2. CISPLATIN. [Concomitant]
     Active Substance: CISPLATIN
     Indication: CHEMOTHERAPY
     Dosage: 15 MG, ONCE, CYCLE 1, STRENGTH: 10 MG/20 ML
     Route: 042
     Dates: start: 20160908, end: 20160908
  3. XELODA [Concomitant]
     Active Substance: CAPECITABINE
     Dosage: 1500 MG, BID, CYCLE 2
     Route: 048
     Dates: start: 20160929, end: 20161012
  4. DEXAMETHASONE SODIUM PHOSPHATE. [Concomitant]
     Active Substance: DEXAMETHASONE SODIUM PHOSPHATE
     Indication: ANTIEMETIC SUPPORTIVE CARE
     Dosage: STRENGTH: 5 MG/ML, 12 MG, ONCE
     Route: 042
     Dates: start: 20160908, end: 20160908
  5. DEXAMETHASONE SODIUM PHOSPHATE. [Concomitant]
     Active Substance: DEXAMETHASONE SODIUM PHOSPHATE
     Dosage: STRENGTH: 5 MG/ML, 8 MG, ONCE
     Route: 042
     Dates: start: 20161118, end: 20161118
  6. DEXAMETHASONE SODIUM PHOSPHATE. [Concomitant]
     Active Substance: DEXAMETHASONE SODIUM PHOSPHATE
     Dosage: STRENGTH: 5 MG/ML, 12 MG, ONCE
     Route: 042
     Dates: start: 20161220, end: 20161220
  7. ALOXI [Concomitant]
     Active Substance: PALONOSETRON HYDROCHLORIDE
     Dosage: 0.25 MG, ONCE
     Route: 042
     Dates: start: 20161027, end: 20161027
  8. ALOXI [Concomitant]
     Active Substance: PALONOSETRON HYDROCHLORIDE
     Dosage: 0.25 MG, ONCE
     Route: 042
     Dates: start: 20170110, end: 20170110
  9. LEXAPRO [Concomitant]
     Active Substance: ESCITALOPRAM OXALATE
     Indication: DEPRESSION
     Dosage: 10 MG, QD
     Route: 048
     Dates: start: 20160901
  10. LASIX [Concomitant]
     Active Substance: FUROSEMIDE
     Indication: PREMEDICATION
     Dosage: 20 MG, ONCE, STRENGTH: 20 MG/2 ML
     Route: 042
     Dates: start: 20160908, end: 20160908
  11. LASIX [Concomitant]
     Active Substance: FUROSEMIDE
     Dosage: 20 MG, ONCE, STRENGTH: 20 MG/2 ML
     Route: 042
     Dates: start: 20160929, end: 20160929
  12. LASIX [Concomitant]
     Active Substance: FUROSEMIDE
     Dosage: 20 MG, ONCE, STRENGTH: 20 MG/2 ML
     Route: 042
     Dates: start: 20161220, end: 20161220
  13. DUPHALAC [Concomitant]
     Active Substance: LACTULOSE
     Indication: CONSTIPATION PROPHYLAXIS
     Dosage: 20 MG, TID
     Route: 048
     Dates: start: 20160904, end: 20160904
  14. XELODA [Concomitant]
     Active Substance: CAPECITABINE
     Indication: CHEMOTHERAPY
     Dosage: 1500 MG, BID, CYCLE 1
     Route: 048
     Dates: start: 20160908, end: 20160921
  15. DEXAMETHASONE SODIUM PHOSPHATE. [Concomitant]
     Active Substance: DEXAMETHASONE SODIUM PHOSPHATE
     Dosage: STRENGTH: 5 MG/ML, 8 MG, ONCE
     Route: 042
     Dates: start: 20160930, end: 20160930
  16. ALOXI [Concomitant]
     Active Substance: PALONOSETRON HYDROCHLORIDE
     Dosage: 0.25 MG, ONCE
     Route: 042
     Dates: start: 20161220, end: 20161220
  17. QUETIAPINE FUMARATE. [Concomitant]
     Active Substance: QUETIAPINE FUMARATE
     Indication: PROPHYLAXIS
     Dosage: 100 MG, QD
     Route: 048
     Dates: start: 20160901
  18. TRITTICO [Concomitant]
     Active Substance: TRAZODONE HYDROCHLORIDE
     Indication: DEPRESSION
     Dosage: 25 MG, QD
     Route: 048
     Dates: start: 20160901
  19. EMEND (FOSAPREPITANT DIMEGLUMINE) [Suspect]
     Active Substance: FOSAPREPITANT DIMEGLUMINE
     Dosage: 150 MG, ONCE
     Route: 042
     Dates: start: 20160929, end: 20160929
  20. EMEND (FOSAPREPITANT DIMEGLUMINE) [Suspect]
     Active Substance: FOSAPREPITANT DIMEGLUMINE
     Dosage: 150 MG, ONCE
     Route: 042
     Dates: start: 20161027, end: 20161027
  21. CISPLATIN. [Concomitant]
     Active Substance: CISPLATIN
     Dosage: 15 MG, ONCE, CYCLE 3, STRENGTH: 10 MG/20 ML
     Route: 042
     Dates: start: 20161027, end: 20161027
  22. ALOXI [Concomitant]
     Active Substance: PALONOSETRON HYDROCHLORIDE
     Indication: ANTIEMETIC SUPPORTIVE CARE
     Dosage: 0.25 MG, ONCE
     Route: 042
     Dates: start: 20160908, end: 20160908
  23. ALOXI [Concomitant]
     Active Substance: PALONOSETRON HYDROCHLORIDE
     Dosage: 0.25 MG, ONCE
     Route: 042
     Dates: start: 20161117, end: 20161117
  24. DEXAMETHASONE SODIUM PHOSPHATE. [Concomitant]
     Active Substance: DEXAMETHASONE SODIUM PHOSPHATE
     Dosage: STRENGTH: 5 MG/ML, 12 MG, ONCE
     Route: 042
     Dates: start: 20160929, end: 20160929
  25. LASIX [Concomitant]
     Active Substance: FUROSEMIDE
     Dosage: 20 MG, ONCE, STRENGTH: 20 MG/2 ML
     Route: 042
     Dates: start: 20161027, end: 20161027
  26. EMEND (FOSAPREPITANT DIMEGLUMINE) [Suspect]
     Active Substance: FOSAPREPITANT DIMEGLUMINE
     Indication: PROPHYLAXIS OF NAUSEA AND VOMITING
     Dosage: 150 MG, ONCE
     Route: 042
     Dates: start: 20160908, end: 20160908
  27. EMEND (FOSAPREPITANT DIMEGLUMINE) [Suspect]
     Active Substance: FOSAPREPITANT DIMEGLUMINE
     Dosage: 150 MG, ONCE
     Route: 042
     Dates: start: 20161117, end: 20161117
  28. EMEND (FOSAPREPITANT DIMEGLUMINE) [Suspect]
     Active Substance: FOSAPREPITANT DIMEGLUMINE
     Dosage: 150 MG, ONCE
     Route: 042
     Dates: start: 20170110, end: 20170110
  29. CISPLATIN. [Concomitant]
     Active Substance: CISPLATIN
     Dosage: 100 MG, ONCE, CYCLE 3, STRENGTH: 50 MG/100 ML
     Route: 042
     Dates: start: 20161027, end: 20161027
  30. CISPLATIN. [Concomitant]
     Active Substance: CISPLATIN
     Dosage: 98 MG, ONCE, REPORTED AS CYCLE 1, STRENGTH: 50 MG/100 ML
     Route: 042
     Dates: start: 20161117, end: 20161117
  31. XELODA [Concomitant]
     Active Substance: CAPECITABINE
     Indication: CHEMOTHERAPY
     Dosage: 150 MG, BID, CYCLE 1
     Route: 048
     Dates: start: 20160908, end: 20160921
  32. DEXAMETHASONE SODIUM PHOSPHATE. [Concomitant]
     Active Substance: DEXAMETHASONE SODIUM PHOSPHATE
     Dosage: STRENGTH: 5 MG/ML, 12 MG, ONCE
     Route: 042
     Dates: start: 20161117, end: 20161117
  33. LASIX [Concomitant]
     Active Substance: FUROSEMIDE
     Dosage: 20 MG, ONCE, STRENGTH: 20 MG/2 ML
     Route: 042
     Dates: start: 20161117, end: 20161117
  34. CISPLATIN. [Concomitant]
     Active Substance: CISPLATIN
     Dosage: 100 MG, ONCE, CYCLE 2, STRENGTH: 50 MG/100 ML
     Route: 042
     Dates: start: 20160929, end: 20160929
  35. XELODA [Concomitant]
     Active Substance: CAPECITABINE
     Dosage: 150 MG, BID, CYCLE 2
     Route: 048
     Dates: start: 20160929, end: 20161012
  36. XELODA [Concomitant]
     Active Substance: CAPECITABINE
     Dosage: 150 MG, BID, CYCLE 3
     Route: 048
     Dates: start: 20161027, end: 20161110
  37. DEXAMETHASONE SODIUM PHOSPHATE. [Concomitant]
     Active Substance: DEXAMETHASONE SODIUM PHOSPHATE
     Dosage: STRENGTH: 5 MG/ML, 8 MG, ONCE
     Route: 042
     Dates: start: 20160909, end: 20160909
  38. DEXAMETHASONE SODIUM PHOSPHATE. [Concomitant]
     Active Substance: DEXAMETHASONE SODIUM PHOSPHATE
     Dosage: STRENGTH: 5 MG/ML, 12 MG, ONCE
     Route: 042
     Dates: start: 20161027, end: 20161027
  39. DEXAMETHASONE SODIUM PHOSPHATE. [Concomitant]
     Active Substance: DEXAMETHASONE SODIUM PHOSPHATE
     Dosage: STRENGTH: 5 MG/ML, 12 MG, ONCE
     Route: 042
     Dates: start: 20170110, end: 20170110
  40. DEPAKINE CHRONO [Concomitant]
     Active Substance: VALPROATE SODIUM
     Indication: DEPRESSION
     Dosage: 300 MG, QD
     Route: 048
     Dates: start: 20160901
  41. EMEND (FOSAPREPITANT DIMEGLUMINE) [Suspect]
     Active Substance: FOSAPREPITANT DIMEGLUMINE
     Dosage: 150 MG, ONCE
     Route: 042
     Dates: start: 20161220, end: 20161220
  42. CISPLATIN. [Concomitant]
     Active Substance: CISPLATIN
     Indication: CHEMOTHERAPY
     Dosage: 100 MG, ONCE, CYCLE 1, STRENGTH: 50 MG/100 ML
     Route: 042
     Dates: start: 20160908, end: 20160908
  43. DEXAMETHASONE SODIUM PHOSPHATE. [Concomitant]
     Active Substance: DEXAMETHASONE SODIUM PHOSPHATE
     Dosage: STRENGTH: 5 MG/ML, 8 MG, ONCE
     Route: 042
     Dates: start: 20170111, end: 20170111
  44. ALPRAM [Concomitant]
     Active Substance: ALPRAZOLAM
     Indication: DEPRESSION
     Dosage: 0.25 MG, QD
     Route: 048
     Dates: start: 20160901
  45. DUPHALAC [Concomitant]
     Active Substance: LACTULOSE
     Dosage: 20 MG, TID
     Route: 048
     Dates: start: 20161011, end: 20161011
  46. CISPLATIN. [Concomitant]
     Active Substance: CISPLATIN
     Dosage: 15 MG, ONCE, CYCLE 2, STRENGTH: 10 MG/20 ML
     Route: 042
     Dates: start: 20160929, end: 20160929
  47. XELODA [Concomitant]
     Active Substance: CAPECITABINE
     Dosage: 1500 MG, BID, CYCLE 3
     Route: 048
     Dates: start: 20161027, end: 20161110
  48. ALOXI [Concomitant]
     Active Substance: PALONOSETRON HYDROCHLORIDE
     Dosage: 0.25 MG, ONCE
     Route: 042
     Dates: start: 20160929, end: 20160929
  49. LASIX [Concomitant]
     Active Substance: FUROSEMIDE
     Dosage: 20 MG, ONCE, STRENGTH: 20 MG/2 ML
     Route: 042
     Dates: start: 20170110, end: 20170110
  50. CISPLATIN. [Concomitant]
     Active Substance: CISPLATIN
     Dosage: 78 MG, ONCE, REPORTED AS CYCLE 2, STRENGTH: 50 MG/100 ML
     Route: 042
     Dates: start: 20161220, end: 20161220

REACTIONS (8)
  - Neutropenia [Recovered/Resolved]
  - Vomiting [Recovered/Resolved]
  - Pyrexia [Recovered/Resolved]
  - Nausea [Recovered/Resolved]
  - Febrile neutropenia [Recovered/Resolved]
  - Abdominal pain [Recovered/Resolved]
  - Decreased appetite [Recovered/Resolved]
  - Stomatitis [Recovered/Resolved]

NARRATIVE: CASE EVENT DATE: 20160912
